FAERS Safety Report 16871159 (Version 1)
Quarter: 2019Q3

REPORT INFORMATION
  Report Type: Spontaneous
  Country: US (occurrence: US)
  Receive Date: 20190930
  Receipt Date: 20190930
  Transmission Date: 20191005
  Serious: Yes (Other)
  Sender: FDA-Public Use
  Company Number: US-ABBVIE-19K-163-2938370-00

PATIENT

DRUGS (1)
  1. LUPRON [Suspect]
     Active Substance: LEUPROLIDE ACETATE
     Indication: PRODUCT USED FOR UNKNOWN INDICATION
     Route: 065

REACTIONS (14)
  - Fatigue [Unknown]
  - Hypoaesthesia [Unknown]
  - Cystitis [Unknown]
  - Product storage error [Unknown]
  - Dizziness [Unknown]
  - Neuropathy peripheral [Unknown]
  - Pain in extremity [Unknown]
  - Haematuria [Unknown]
  - Urinary bladder haemorrhage [Unknown]
  - Frequent bowel movements [Unknown]
  - Taste disorder [Unknown]
  - Dry skin [Unknown]
  - Insomnia [Unknown]
  - Limb mass [Unknown]
